FAERS Safety Report 7863365-4 (Version None)
Quarter: 2011Q4

REPORT INFORMATION
  Report Type: 
  Country: None (occurrence: None)
  Receive Date: 20111027
  Receipt Date: 20101202
  Transmission Date: 20120403
  Serious: No
  Sender: FDA-Public Use
  Company Number: US-AMGEN-USASP2010007330

PATIENT
  Sex: Female

DRUGS (1)
  1. ENBREL [Suspect]
     Indication: RHEUMATOID ARTHRITIS
     Dates: start: 20100501

REACTIONS (11)
  - ABDOMINAL PAIN UPPER [None]
  - FATIGUE [None]
  - PRURITUS GENERALISED [None]
  - DYSPEPSIA [None]
  - THERAPEUTIC RESPONSE DECREASED [None]
  - SWELLING FACE [None]
  - DYSKINESIA [None]
  - HEADACHE [None]
  - OEDEMA PERIPHERAL [None]
  - INJECTION SITE HAEMATOMA [None]
  - NAUSEA [None]
